FAERS Safety Report 25452259 (Version 1)
Quarter: 2025Q2

REPORT INFORMATION
  Report Type: Spontaneous
  Country: SE (occurrence: SE)
  Receive Date: 20250618
  Receipt Date: 20250618
  Transmission Date: 20250716
  Serious: Yes (Life-Threatening)
  Sender: B BRAUN
  Company Number: SE-B.Braun Medical Inc.-2178959

PATIENT
  Age: 32 Year
  Sex: Female
  Weight: 118 kg

DRUGS (11)
  1. SODIUM CHLORIDE [Suspect]
     Active Substance: SODIUM CHLORIDE
     Dates: start: 20250514, end: 20250518
  2. ROCURONIUM [Suspect]
     Active Substance: ROCURONIUM BROMIDE
  3. ALBUMIN HUMAN [Concomitant]
     Active Substance: ALBUMIN HUMAN
  4. PROPOFOL [Concomitant]
     Active Substance: PROPOFOL
  5. NOREPINEPHRINE [Concomitant]
     Active Substance: NOREPINEPHRINE
  6. KETAMIN [Concomitant]
     Active Substance: KETAMINE
  7. FENTANYL [Concomitant]
     Active Substance: FENTANYL
  8. Ringer-Acetat [Concomitant]
  9. LIDOCAINE [Concomitant]
     Active Substance: LIDOCAINE
  10. Paracetamol Baxte [Concomitant]
  11. OXYCODONE [Concomitant]
     Active Substance: OXYCODONE

REACTIONS (1)
  - Bronchospasm [Recovered/Resolved]
